FAERS Safety Report 8615075 (Version 3)
Quarter: 2012Q4

REPORT INFORMATION
  Report Type: 
  Country: US (occurrence: US)
  Receive Date: 20120614
  Receipt Date: 20120926
  Transmission Date: 20130627
  Serious: Yes (Other)
  Sender: FDA-Public Use
  Company Number: US-JNJFOC-20120604172

PATIENT
  Sex: Female

DRUGS (11)
  1. EXTRA STRENGTH TYLENOL [Suspect]
     Route: 048
  2. EXTRA STRENGTH TYLENOL [Suspect]
     Indication: TEMPORAL ARTERITIS
     Dosage: started in fall of 2006, stopped either late 2011 or early 2012
     Route: 048
     Dates: start: 2006
  3. REGULAR STRENGTH TYLENOL [Suspect]
     Indication: PAIN
     Dosage: 2 caplets every 4-6 hours as needed
     Route: 048
  4. REGULAR STRENGTH TYLENOL [Suspect]
     Indication: TEMPORAL ARTERITIS
     Dosage: 2 caplets every 4-6 hours as needed
     Route: 048
  5. PREDNISONE [Concomitant]
     Indication: TEMPORAL ARTERITIS
     Route: 065
     Dates: start: 2006
  6. PREDNISONE [Concomitant]
     Indication: TEMPORAL ARTERITIS
     Route: 065
     Dates: start: 2006
  7. VITAMIN D [Concomitant]
     Indication: VITAMIN SUPPLEMENTATION
     Route: 065
  8. FOSAMAX [Concomitant]
     Indication: OSTEOPOROSIS
     Route: 065
     Dates: start: 2001
  9. PROLIA [Concomitant]
     Indication: OSTEOPOROSIS
     Route: 065
     Dates: start: 20120228
  10. CALCIUM [Concomitant]
  11. FISH OIL [Concomitant]
     Dates: start: 2009

REACTIONS (4)
  - Uterine mass [Recovered/Resolved]
  - Diverticulitis [Unknown]
  - Abdominal pain upper [Not Recovered/Not Resolved]
  - Intentional drug misuse [Unknown]
